FAERS Safety Report 9156914 (Version 4)
Quarter: 2013Q2

REPORT INFORMATION
  Report Type: Report from Study
  Country: CA (occurrence: CA)
  Receive Date: 20130312
  Receipt Date: 20130510
  Transmission Date: 20140414
  Serious: Yes (Other)
  Sender: FDA-Public Use
  Company Number: PHHY2013CA023270

PATIENT
  Sex: Male

DRUGS (1)
  1. SANDOSTATIN LAR [Suspect]
     Indication: PANCREATITIS
     Dosage: 20 MG, ONCE A MONTH
     Route: 030
     Dates: start: 20080903, end: 20130201

REACTIONS (3)
  - Lung carcinoma cell type unspecified recurrent [Unknown]
  - Metastases to neck [Unknown]
  - Terminal state [Unknown]
